FAERS Safety Report 16650949 (Version 1)
Quarter: 2019Q3

REPORT INFORMATION
  Report Type: Spontaneous
  Country: GB (occurrence: GB)
  Receive Date: 20190731
  Receipt Date: 20190731
  Transmission Date: 20191004
  Serious: Yes (Life-Threatening, Hospitalization, Disabling, Other)
  Sender: FDA-Public Use
  Company Number: GB-AUROBINDO-AUR-APL-2019-044228

PATIENT

DRUGS (1)
  1. BUPIVACAINE HYDROCHLORIDE. [Suspect]
     Active Substance: BUPIVACAINE HYDROCHLORIDE
     Indication: PRODUCT USED FOR UNKNOWN INDICATION
     Dosage: UNK
     Route: 042

REACTIONS (17)
  - Delirium [Unknown]
  - Somnolence [Unknown]
  - Loss of consciousness [Unknown]
  - Hypertension [Unknown]
  - Speech disorder [Unknown]
  - Gait disturbance [Unknown]
  - Cardiotoxicity [Unknown]
  - Anger [Unknown]
  - Neurotoxicity [Unknown]
  - Euphoric mood [Unknown]
  - Trance [Unknown]
  - Local anaesthetic systemic toxicity [Not Recovered/Not Resolved]
  - Dyspnoea [Unknown]
  - Drooling [Unknown]
  - Disturbance in attention [Unknown]
  - Aggression [Unknown]
  - Hypotension [Unknown]
